FAERS Safety Report 5967665-4 (Version None)
Quarter: 2008Q4

REPORT INFORMATION
  Report Type: 
  Country: None (occurrence: None)
  Receive Date: 20081126
  Receipt Date: 20081117
  Transmission Date: 20090506
  Serious: Yes (Hospitalization)
  Sender: FDA-Public Use
  Company Number: PHHY2008GB23975

PATIENT
  Sex: Male

DRUGS (3)
  1. CLOZARIL [Suspect]
     Indication: SCHIZOPHRENIA
     Dosage: 200 MG, QD
     Route: 048
     Dates: start: 19981218, end: 20081108
  2. CLOZARIL [Suspect]
     Indication: PSYCHOTIC DISORDER
  3. PAROXETINE HCL [Concomitant]
     Indication: DEPRESSION
     Dosage: 20 MG DAILY

REACTIONS (2)
  - CHEST DISCOMFORT [None]
  - DYSPNOEA [None]
